FAERS Safety Report 4936987-8 (Version None)
Quarter: 2006Q1

REPORT INFORMATION
  Report Type: 
  Country: None (occurrence: None)
  Receive Date: 20060309
  Receipt Date: 20060126
  Transmission Date: 20060701
  Serious: Yes (Other)
  Sender: FDA-Public Use
  Company Number: GB-ROCHE-434113

PATIENT
  Age: 50 Year
  Sex: Female
  Weight: 56.7 kg

DRUGS (4)
  1. PEGASYS [Suspect]
     Route: 058
     Dates: start: 20050815
  2. PEGASYS [Suspect]
     Route: 058
     Dates: start: 20060107, end: 20060202
  3. COPEGUS [Suspect]
     Indication: DRUG USE FOR UNKNOWN INDICATION
     Route: 048
     Dates: start: 20050815
  4. COPEGUS [Suspect]
     Route: 048

REACTIONS (3)
  - ANAEMIA [None]
  - NEUTROPENIA [None]
  - VAGINAL HAEMORRHAGE [None]
